FAERS Safety Report 12839976 (Version 2)
Quarter: 2017Q4

REPORT INFORMATION
  Report Type: Spontaneous
  Country: JP (occurrence: JP)
  Receive Date: 20161012
  Receipt Date: 20171106
  Transmission Date: 20180320
  Serious: Yes (Other)
  Sender: FDA-Public Use
  Company Number: JP-CELGENEUS-JPN-2016101730

PATIENT

DRUGS (8)
  1. EPIRUBICIN [Concomitant]
     Active Substance: EPIRUBICIN
     Indication: PRODUCT USED FOR UNKNOWN INDICATION
     Route: 065
  2. CYCLOPHOSPHAMIDE. [Concomitant]
     Active Substance: CYCLOPHOSPHAMIDE
     Indication: PRODUCT USED FOR UNKNOWN INDICATION
     Route: 065
  3. ABRAXANE [Suspect]
     Active Substance: PACLITAXEL
     Dosage: 150 MILLIGRAM/SQ. METER
     Route: 041
  4. FLUOROURACIL. [Concomitant]
     Active Substance: FLUOROURACIL
     Indication: PRODUCT USED FOR UNKNOWN INDICATION
     Route: 065
  5. ABRAXANE [Suspect]
     Active Substance: PACLITAXEL
     Dosage: 125 MILLIGRAM/SQ. METER
     Route: 041
  6. ABRAXANE [Suspect]
     Active Substance: PACLITAXEL
     Indication: BREAST CANCER
     Dosage: 100 MILLIGRAM/SQ. METER
     Route: 041
  7. ABRAXANE [Suspect]
     Active Substance: PACLITAXEL
     Dosage: 260 MILLIGRAM/SQ. METER
     Route: 041
  8. ABRAXANE [Suspect]
     Active Substance: PACLITAXEL
     Dosage: 175 MILLIGRAM/SQ. METER
     Route: 041

REACTIONS (18)
  - Fatigue [Unknown]
  - Anaemia [Unknown]
  - Myalgia [Unknown]
  - Breast cancer [Unknown]
  - Decreased appetite [Unknown]
  - Mental disorder [Unknown]
  - Thrombocytopenia [Unknown]
  - Leukopenia [Unknown]
  - Bone marrow failure [Unknown]
  - Nausea [Unknown]
  - Arthralgia [Unknown]
  - Hepatic function abnormal [Unknown]
  - Neutropenia [Unknown]
  - Liver injury [Unknown]
  - Transaminases increased [Unknown]
  - Peripheral sensory neuropathy [Unknown]
  - Diarrhoea [Unknown]
  - Alopecia [Unknown]
